FAERS Safety Report 4322353-5 (Version None)
Quarter: 2004Q1

REPORT INFORMATION
  Report Type: 
  Country: None (occurrence: None)
  Receive Date: 20040319
  Receipt Date: 20040304
  Transmission Date: 20041129
  Serious: Yes (Hospitalization)
  Sender: FDA-Public Use
  Company Number: 2003JP005515

PATIENT
  Age: 26 Year
  Sex: Female
  Weight: 43 kg

DRUGS (7)
  1. PROGRAF [Suspect]
     Indication: RENAL TRANSPLANT
     Dosage: SEE IMAGE
     Route: 048
     Dates: start: 19980630, end: 19980703
  2. PROGRAF [Suspect]
     Indication: RENAL TRANSPLANT
     Dosage: SEE IMAGE
     Route: 048
     Dates: start: 19980704, end: 20000412
  3. PROGRAF [Suspect]
     Indication: RENAL TRANSPLANT
     Dosage: SEE IMAGE
     Route: 048
     Dates: start: 19980701, end: 20000703
  4. PROGRAF [Suspect]
     Indication: RENAL TRANSPLANT
     Dosage: SEE IMAGE
     Route: 048
     Dates: start: 20000413
  5. PREDDONINE (PREDNISOLONE) [Concomitant]
  6. CARNACULIN (PANCREAS EXTRACT) [Concomitant]
  7. ADONA (CARBAZOCHROME SODIUM SULFONATE) [Concomitant]

REACTIONS (3)
  - OPTIC DISC VASCULAR DISORDER [None]
  - RETINAL VEIN OCCLUSION [None]
  - VASCULITIS [None]
